FAERS Safety Report 15012921 (Version 1)
Quarter: 2018Q2

REPORT INFORMATION
  Report Type: Report from Study
  Country: ES (occurrence: ES)
  Receive Date: 20180614
  Receipt Date: 20180614
  Transmission Date: 20180711
  Serious: Yes (Other)
  Sender: FDA-Public Use
  Company Number: ES-TEVA-2018-ES-907531

PATIENT
  Sex: Male

DRUGS (1)
  1. COPAXONE [Suspect]
     Active Substance: GLATIRAMER ACETATE
     Indication: MULTIPLE SCLEROSIS
     Dosage: COPAXONE 40 MG/ML
     Route: 058
     Dates: start: 20151130

REACTIONS (2)
  - Immediate post-injection reaction [Recovered/Resolved with Sequelae]
  - Asphyxia [Recovered/Resolved with Sequelae]

NARRATIVE: CASE EVENT DATE: 2018
